FAERS Safety Report 4482613-4 (Version None)
Quarter: 2004Q4

REPORT INFORMATION
  Report Type: 
  Country: None (occurrence: None)
  Receive Date: 20041022
  Receipt Date: 20041011
  Transmission Date: 20050328
  Serious: Yes (Death)
  Sender: FDA-Public Use
  Company Number: CH-JNJFOC-20041005890

PATIENT
  Age: 67 Year
  Sex: Male

DRUGS (9)
  1. NESIRITIDE [Suspect]
     Route: 042
  2. NESIRITIDE [Suspect]
     Route: 042
  3. NORADRENALINE [Concomitant]
     Indication: DRUG USE FOR UNKNOWN INDICATION
     Dates: start: 20040604
  4. OXYGEN [Concomitant]
  5. DIGITALIS [Concomitant]
  6. FRUSEMIDE [Concomitant]
     Dates: start: 20040613
  7. NITROGLYCERIN [Concomitant]
     Dates: start: 20040609
  8. DOBUTAMINE [Concomitant]
     Dates: start: 20040603
  9. MILRINONE [Concomitant]
     Dates: start: 20040604

REACTIONS (8)
  - ATRIOVENTRICULAR BLOCK [None]
  - BLOOD POTASSIUM INCREASED [None]
  - BRAIN NATRIURETIC PEPTIDE INCREASED [None]
  - HYPOTENSION [None]
  - PULMONARY OEDEMA [None]
  - TACHYCARDIA [None]
  - VENTRICULAR ARRHYTHMIA [None]
  - VENTRICULAR DYSFUNCTION [None]
